FAERS Safety Report 6311182-9 (Version None)
Quarter: 2009Q3

REPORT INFORMATION
  Report Type: 
  Country: None (occurrence: None)
  Receive Date: 20090817
  Receipt Date: 20090806
  Transmission Date: 20100115
  Serious: Yes (Other)
  Sender: FDA-Public Use
  Company Number: US-AMGEN-QUU358966

PATIENT
  Sex: Male

DRUGS (2)
  1. ENBREL [Suspect]
     Indication: RHEUMATOID ARTHRITIS
     Route: 058
     Dates: start: 20090401
  2. UNSPECIFIED MEDICATION [Concomitant]
     Dates: end: 20090101

REACTIONS (3)
  - DEPRESSION [None]
  - HEMICEPHALALGIA [None]
  - MOOD ALTERED [None]
